FAERS Safety Report 5720219-7 (Version None)
Quarter: 2008Q2

REPORT INFORMATION
  Report Type: 
  Country: None (occurrence: None)
  Receive Date: 20080428
  Receipt Date: 20070905
  Transmission Date: 20081010
  Serious: No
  Sender: FDA-Public Use
  Company Number: US-AMGEN-US241802

PATIENT
  Age: 56 Year
  Sex: Male

DRUGS (1)
  1. SENSIPAR [Suspect]
     Indication: DRUG USE FOR UNKNOWN INDICATION
     Route: 065
     Dates: start: 20070801

REACTIONS (2)
  - DIARRHOEA [None]
  - FAECES DISCOLOURED [None]
